FAERS Safety Report 4394957-5 (Version None)
Quarter: 2004Q3

REPORT INFORMATION
  Report Type: 
  Country: None (occurrence: None)
  Receive Date: 20040712
  Receipt Date: 20040213
  Transmission Date: 20050211
  Serious: Yes (Other)
  Sender: FDA-Public Use
  Company Number: DE-GLAXOSMITHKLINE-D0043173A

PATIENT
  Age: 70 Year
  Sex: Male
  Weight: 90 kg

DRUGS (5)
  1. ZYBAN [Suspect]
     Dosage: 1TAB PER DAY
     Route: 048
     Dates: start: 20030916, end: 20031002
  2. ALLOPURINOL [Concomitant]
     Indication: GOUT
     Dosage: 300MG PER DAY
     Route: 065
     Dates: start: 20030916, end: 20031002
  3. ALPHA-LIPON ACID 600 [Concomitant]
     Dosage: 600MG PER DAY
     Route: 065
     Dates: start: 20030916, end: 20031002
  4. ISCOVER [Concomitant]
     Indication: THROMBOSIS PROPHYLAXIS
     Route: 065
     Dates: start: 20030916, end: 20031002
  5. ACE INHIBITOR [Concomitant]
     Route: 065

REACTIONS (10)
  - CEREBRAL ATROPHY [None]
  - DISTURBANCE IN ATTENTION [None]
  - DYSGRAPHIA [None]
  - ENCEPHALOPATHY [None]
  - FALL [None]
  - GAIT DISTURBANCE [None]
  - PAIN [None]
  - PARKINSON'S DISEASE [None]
  - POLYNEUROPATHY [None]
  - VERTIGO [None]
